FAERS Safety Report 11090351 (Version 1)
Quarter: 2015Q2

REPORT INFORMATION
  Report Type: Spontaneous
  Country: US (occurrence: None)
  Receive Date: 20150504
  Receipt Date: 20150504
  Transmission Date: 20150821
  Serious: Yes (Hospitalization)
  Sender: FDA-Public Use
  Company Number: None

PATIENT
  Age: 71 Year
  Sex: Male
  Weight: 79.2 kg

DRUGS (1)
  1. BEVACIZUMAB (RHUMAB VEGF) [Suspect]
     Active Substance: BEVACIZUMAB
     Dates: end: 20150414

REACTIONS (7)
  - Dizziness [None]
  - Confusional state [None]
  - Disturbance in attention [None]
  - Aphasia [None]
  - Muscular weakness [None]
  - Speech disorder [None]
  - Gait disturbance [None]

NARRATIVE: CASE EVENT DATE: 20150428
